FAERS Safety Report 16595813 (Version 2)
Quarter: 2019Q3

REPORT INFORMATION
  Report Type: Spontaneous
  Country: US (occurrence: US)
  Receive Date: 20190719
  Receipt Date: 20190719
  Transmission Date: 20191004
  Serious: Yes (Other)
  Sender: FDA-Public Use
  Company Number: US-CIPLA LTD.-2019US05152

PATIENT

DRUGS (6)
  1. METHADONE [Suspect]
     Active Substance: METHADONE HYDROCHLORIDE
     Indication: PRODUCT USED FOR UNKNOWN INDICATION
     Dosage: 185 MILLIGRAM, DAILY
     Route: 065
  2. BUPIVACAINE. [Suspect]
     Active Substance: BUPIVACAINE
     Indication: SPINAL ANAESTHESIA
     Dosage: UNK
     Route: 037
  3. VITAMIN D NOS [Suspect]
     Active Substance: VITAMIN D NOS
     Indication: OSTEOPOROSIS
     Dosage: UNK
     Route: 048
  4. LOW MOLECULAR WEIGHT HEPARIN [Suspect]
     Active Substance: UNSPECIFIED INGREDIENT
     Indication: THROMBOSIS PROPHYLAXIS
     Dosage: 30 MILLIGRAM, BID
     Route: 058
  5. HYDROXYPROGESTERONE [Suspect]
     Active Substance: HYDROXYPROGESTERONE
     Indication: PROPHYLAXIS
     Dosage: UNK, INJECTION
     Route: 030
  6. CALCIUM ACETATE. [Suspect]
     Active Substance: CALCIUM ACETATE
     Indication: OSTEOPOROSIS
     Dosage: UNK
     Route: 048

REACTIONS (2)
  - Premature delivery [Unknown]
  - Exposure during pregnancy [Unknown]
